FAERS Safety Report 8222811-7 (Version None)
Quarter: 2012Q1

REPORT INFORMATION
  Report Type: 
  Country: None (occurrence: None)
  Receive Date: 20120320
  Receipt Date: 20120309
  Transmission Date: 20120608
  Serious: Yes (Other)
  Sender: FDA-Public Use
  Company Number: US-JNJFOC-20120306617

PATIENT
  Age: 31 Year
  Sex: Female

DRUGS (1)
  1. INFLIXIMAB, RECOMBINANT [Suspect]
     Indication: EXPOSURE VIA SEMEN
     Route: 050

REACTIONS (2)
  - MATERNAL EXPOSURE BEFORE PREGNANCY [None]
  - PREMATURE DELIVERY [None]
